FAERS Safety Report 6900351-2 (Version None)
Quarter: 2010Q3

REPORT INFORMATION
  Report Type: 
  Country: None (occurrence: None)
  Receive Date: 20100803
  Receipt Date: 20100722
  Transmission Date: 20110219
  Serious: Yes (Hospitalization)
  Sender: FDA-Public Use
  Company Number: PHFR2010GB00769

PATIENT
  Sex: Male
  Weight: 96 kg

DRUGS (4)
  1. CLOZARIL [Suspect]
     Indication: SCHIZOPHRENIA
     Dosage: UNK MG, UNK
     Dates: start: 20100127
  2. CLOZARIL [Suspect]
     Dosage: 400 MG, UNK
     Dates: start: 20100201
  3. HYOSCINE HBR HYT [Concomitant]
     Indication: SALIVARY HYPERSECRETION
     Dosage: 300 MG, UNK
     Dates: start: 20100401
  4. SENNA [Concomitant]
     Indication: CONSTIPATION
     Dosage: UNK
     Dates: start: 20100501

REACTIONS (2)
  - CHEST PAIN [None]
  - PNEUMOTHORAX [None]
